FAERS Safety Report 5647617-4 (Version None)
Quarter: 2008Q1

REPORT INFORMATION
  Report Type: 
  Country: None (occurrence: None)
  Receive Date: 20080303
  Receipt Date: 20080222
  Transmission Date: 20080703
  Serious: Yes (Hospitalization)
  Sender: FDA-Public Use
  Company Number: FR-ABBOTT-07P-056-0415088-00

PATIENT
  Age: 43 Year
  Sex: Male

DRUGS (9)
  1. DEPAKENE [Suspect]
     Indication: EPILEPSY
     Route: 048
     Dates: end: 20070723
  2. DEPAKENE [Suspect]
     Route: 048
     Dates: start: 20070724, end: 20070728
  3. CYAMEMAZINE [Suspect]
     Indication: MENTAL DISORDER
     Route: 048
  4. MIRTAZAPINE [Suspect]
     Indication: DEPRESSION
     Route: 048
     Dates: end: 20070712
  5. OLANZAPINE [Suspect]
     Indication: MENTAL DISORDER
     Route: 048
  6. HYDROXYZINE HYDROCHLORIDE [Concomitant]
     Indication: DRUG USE FOR UNKNOWN INDICATION
     Route: 065
  7. METFORMIN HYDROCHLORIDE [Concomitant]
     Indication: DRUG USE FOR UNKNOWN INDICATION
     Route: 048
  8. OXAZEPAM [Concomitant]
     Indication: DRUG USE FOR UNKNOWN INDICATION
  9. ZOLPIDEM [Concomitant]
     Indication: DRUG USE FOR UNKNOWN INDICATION

REACTIONS (7)
  - ALCOHOLISM [None]
  - CONVULSION [None]
  - HYPONATRAEMIA [None]
  - INAPPROPRIATE ANTIDIURETIC HORMONE SECRETION [None]
  - LUNG DISORDER [None]
  - MALAISE [None]
  - TREATMENT NONCOMPLIANCE [None]
